FAERS Safety Report 17503679 (Version 1)
Quarter: 2020Q1

REPORT INFORMATION
  Report Type: Spontaneous
  Country: US (occurrence: US)
  Receive Date: 20200305
  Receipt Date: 20200305
  Transmission Date: 20200409
  Serious: No
  Sender: FDA-Public Use
  Company Number: US-ROCHE-2331122

PATIENT
  Sex: Female

DRUGS (1)
  1. XOLAIR [Suspect]
     Active Substance: OMALIZUMAB
     Indication: CHRONIC SPONTANEOUS URTICARIA
     Dosage: INITIALLY UNTIL RECENTLY ONCE EVERY 4 WEEKS CURRENTLY ONCE EVERY 6 WEEKS
     Route: 058
     Dates: start: 20170920, end: 20190529

REACTIONS (1)
  - Pruritus [Recovered/Resolved]
